FAERS Safety Report 16809189 (Version 1)
Quarter: 2019Q4

REPORT INFORMATION
  Report Type: Spontaneous
  Country: US (occurrence: US)
  Receive Date: 20190914
  Receipt Date: 20190914
  Transmission Date: 20200122
  Serious: Yes (Other)
  Sender: FDA-Public Use
  Company Number: None

PATIENT
  Age: 35 Year
  Sex: Female
  Weight: 75.15 kg

DRUGS (5)
  1. BUPHENERINE-NALOXONE STRIPS [Suspect]
     Active Substance: BUPRENORPHINE\NALOXONE
     Indication: DRUG DEPENDENCE
     Dosage: ?          QUANTITY:1 STRIP;?
     Route: 060
     Dates: start: 20150916, end: 20190913
  2. PROZAC 80MG [Concomitant]
  3. NEXIUM [Concomitant]
     Active Substance: ESOMEPRAZOLE MAGNESIUM
  4. STELARA [Concomitant]
     Active Substance: USTEKINUMAB
  5. EXCEDRIN [Concomitant]
     Active Substance: ACETAMINOPHEN\ASPIRIN\CAFFEINE

REACTIONS (3)
  - Drug level [None]
  - Product substitution issue [None]
  - Drug screen [None]

NARRATIVE: CASE EVENT DATE: 20190913
